FAERS Safety Report 8243900-7 (Version None)
Quarter: 2012Q1

REPORT INFORMATION
  Report Type: 
  Country: None (occurrence: None)
  Receive Date: 20120329
  Receipt Date: 20110425
  Transmission Date: 20120608
  Serious: No
  Sender: FDA-Public Use
  Company Number: US-MYLANLABS-2011S1008654

PATIENT
  Sex: Female

DRUGS (1)
  1. ESTRADIOL [Suspect]
     Dosage: QW
     Route: 062

REACTIONS (2)
  - PETECHIAE [None]
  - RASH PRURITIC [None]
